FAERS Safety Report 8258178-8 (Version None)
Quarter: 2012Q2

REPORT INFORMATION
  Report Type: 
  Country: None (occurrence: None)
  Receive Date: 20120404
  Receipt Date: 20120328
  Transmission Date: 20120825
  Serious: Yes (Other)
  Sender: FDA-Public Use
  Company Number: PHHY2012DE028005

PATIENT
  Sex: Female
  Weight: 75 kg

DRUGS (4)
  1. SIMVASTATIN [Suspect]
     Indication: HYPERLIPIDAEMIA
     Dosage: 20 MG/DAY
     Route: 048
     Dates: start: 20070101
  2. PLATELET AGGREGATION INHIBITORS [Concomitant]
  3. EXFORGE HCT [Suspect]
     Indication: HYPERTENSION
     Dosage: 5/160/ 12.5 MG
     Route: 048
     Dates: start: 20080221
  4. METOPROLOL SUCCINATE [Suspect]
     Indication: HYPERTENSION
     Dosage: 200 MG/DAY
     Route: 048
     Dates: start: 20070101

REACTIONS (2)
  - DYSPNOEA [None]
  - ANGINA PECTORIS [None]
